FAERS Safety Report 17743983 (Version 1)
Quarter: 2020Q2

REPORT INFORMATION
  Report Type: Report from Study
  Country: PA (occurrence: PA)
  Receive Date: 20200504
  Receipt Date: 20200504
  Transmission Date: 20200714
  Serious: Yes (Other)
  Sender: FDA-Public Use
  Company Number: NVSC2020PA120073

PATIENT
  Age: 60 Year
  Sex: Male

DRUGS (1)
  1. GALVUS MET [Suspect]
     Active Substance: METFORMIN HYDROCHLORIDE\VILDAGLIPTIN
     Indication: PRODUCT USED FOR UNKNOWN INDICATION
     Dosage: UNK
     Route: 065

REACTIONS (2)
  - Intellectual disability [Unknown]
  - Diabetes mellitus [Unknown]
